FAERS Safety Report 7528125-2 (Version None)
Quarter: 2011Q2

REPORT INFORMATION
  Report Type: 
  Country: None (occurrence: None)
  Receive Date: 20110607
  Receipt Date: 20110214
  Transmission Date: 20111010
  Serious: No
  Sender: FDA-Public Use
  Company Number: US-ASTRAZENECA-2011SE08527

PATIENT
  Age: 66 Year
  Sex: Female

DRUGS (2)
  1. PLAVIX [Suspect]
     Indication: ANTICOAGULANT THERAPY
     Route: 065
     Dates: start: 20101111
  2. OMEPRAZOLE [Suspect]
     Route: 048

REACTIONS (5)
  - FACE OEDEMA [None]
  - OEDEMA PERIPHERAL [None]
  - EYE OEDEMA [None]
  - UPPER RESPIRATORY TRACT INFECTION [None]
  - CHEST PAIN [None]
